FAERS Safety Report 5734796-3 (Version None)
Quarter: 2008Q2

REPORT INFORMATION
  Report Type: 
  Country: None (occurrence: None)
  Receive Date: 20080508
  Receipt Date: 20080423
  Transmission Date: 20081010
  Serious: Yes (Other)
  Sender: FDA-Public Use
  Company Number: 026803

PATIENT
  Age: 18 Year
  Sex: Female
  Weight: 54.4 kg

DRUGS (4)
  1. ADDERALL 10 [Suspect]
     Indication: ATTENTION DEFICIT/HYPERACTIVITY DISORDER
     Dosage: 15 MG QD ORAL
     Route: 048
     Dates: start: 20070801, end: 20080424
  2. ADDERALL 10 [Suspect]
     Indication: ATTENTION DEFICIT/HYPERACTIVITY DISORDER
     Dosage: 15 MG QD ORAL
     Route: 048
     Dates: start: 20080425
  3. TRAMADOL HCL [Concomitant]
  4. IMITREX [Concomitant]

REACTIONS (23)
  - AGITATION [None]
  - FATIGUE [None]
  - FEELING ABNORMAL [None]
  - HYPERSOMNIA [None]
  - HYPOAESTHESIA [None]
  - INFECTIOUS MONONUCLEOSIS [None]
  - LETHARGY [None]
  - LOSS OF CONSCIOUSNESS [None]
  - MIGRAINE [None]
  - NAUSEA [None]
  - OEDEMA PERIPHERAL [None]
  - PAIN IN EXTREMITY [None]
  - PARAESTHESIA [None]
  - REFUSAL OF TREATMENT BY PATIENT [None]
  - SENSORY DISTURBANCE [None]
  - SKIN DEPIGMENTATION [None]
  - SKIN DISCOLOURATION [None]
  - SOMNOLENCE [None]
  - SWOLLEN TONGUE [None]
  - TREATMENT NONCOMPLIANCE [None]
  - TREMOR [None]
  - TRUANCY [None]
  - VISUAL DISTURBANCE [None]
